FAERS Safety Report 9816569 (Version 1)
Quarter: 2014Q1

REPORT INFORMATION
  Report Type: Spontaneous
  Country: KR (occurrence: KR)
  Receive Date: 20140114
  Receipt Date: 20140114
  Transmission Date: 20141002
  Serious: Yes (Other)
  Sender: FDA-Public Use
  Company Number: KR-ELI_LILLY_AND_COMPANY-KR201401003986

PATIENT
  Sex: 0

DRUGS (4)
  1. GEMCITABINE HYDROCHLORIDE [Suspect]
     Indication: NON-SMALL CELL LUNG CANCER STAGE IIIB
     Dosage: 350 MG/M2, WEEKLY (1/W)
     Route: 065
  2. GEMCITABINE HYDROCHLORIDE [Suspect]
     Dosage: 1250 MG/M2, OTHER
     Route: 065
  3. CISPLATIN [Suspect]
     Indication: NON-SMALL CELL LUNG CANCER STAGE IIIB
     Dosage: 20 MG/M2, WEEKLY (1/W)
  4. CISPLATIN [Suspect]
     Dosage: 60 MG/M2, OTHER
     Route: 065

REACTIONS (1)
  - Haemoptysis [Unknown]
